FAERS Safety Report 5180971-9 (Version None)
Quarter: 2006Q4

REPORT INFORMATION
  Report Type: 
  Country: None (occurrence: None)
  Receive Date: 20061220
  Receipt Date: 20061009
  Transmission Date: 20070319
  Serious: Yes (Death, Other)
  Sender: FDA-Public Use
  Company Number: US-BAYER-200616020BWH

PATIENT
  Age: 73 Year
  Sex: Male

DRUGS (1)
  1. NEXAVAR [Suspect]
     Indication: RENAL CELL CARCINOMA STAGE UNSPECIFIED
     Dosage: TOTAL DAILY DOSE: 800 MG  UNIT DOSE: 200 MG
     Route: 048
     Dates: start: 20061101

REACTIONS (7)
  - DEATH [None]
  - DISEASE PROGRESSION [None]
  - HEADACHE [None]
  - HICCUPS [None]
  - MYOCARDIAL INFARCTION [None]
  - PAIN [None]
  - STOMATITIS [None]
